FAERS Safety Report 17749262 (Version 6)
Quarter: 2025Q4

REPORT INFORMATION
  Report Type: Spontaneous
  Country: EU (occurrence: EU)
  Receive Date: 20200506
  Receipt Date: 20251107
  Transmission Date: 20260117
  Serious: Yes (Hospitalization, Other)
  Sender: ALEXION PHARMACEUTICALS
  Company Number: EU-ALEXION PHARMACEUTICALS INC.-A202006149

PATIENT
  Age: 5 Year
  Sex: Male
  Weight: 22 kg

DRUGS (9)
  1. KANUMA [Suspect]
     Active Substance: SEBELIPASE ALFA
     Indication: Lysosomal acid lipase deficiency
     Dosage: 1 MG/KG, QIW
     Route: 065
     Dates: start: 20150319, end: 20151104
  2. KANUMA [Suspect]
     Active Substance: SEBELIPASE ALFA
     Dosage: 3 MG/KG, QIW
     Route: 065
     Dates: start: 20151104, end: 20191109
  3. KANUMA [Suspect]
     Active Substance: SEBELIPASE ALFA
     Dosage: 4.5 MG/KG, QIW
     Route: 065
     Dates: start: 20180318
  4. KANUMA [Suspect]
     Active Substance: SEBELIPASE ALFA
     Dosage: 5 MG/KG, QIW
     Route: 065
     Dates: start: 20191109
  5. KANUMA [Suspect]
     Active Substance: SEBELIPASE ALFA
     Dosage: 3.7 MG/KG, ABSOLUTE DOSE 80MG/KG UNTIL EVENT
     Route: 065
  6. KANUMA [Suspect]
     Active Substance: SEBELIPASE ALFA
     Dosage: 3.6 MG/KG
     Route: 065
  7. KANUMA [Suspect]
     Active Substance: SEBELIPASE ALFA
     Dosage: 5.4 MG/KG, QIW
     Route: 065
     Dates: start: 20200403
  8. KANUMA [Suspect]
     Active Substance: SEBELIPASE ALFA
     Dosage: 3.75 MG/KG, TWICE WEEKLY
     Route: 065
  9. METRONIDAZOLE [Concomitant]
     Active Substance: METRONIDAZOLE
     Indication: Pyrexia
     Dosage: UNK
     Route: 065

REACTIONS (11)
  - C-reactive protein increased [Unknown]
  - Systemic inflammatory response syndrome [Unknown]
  - Central venous catheter removal [Unknown]
  - Abdominal distension [Unknown]
  - Pyrexia [Unknown]
  - Therapy non-responder [Unknown]
  - Drug ineffective [Not Recovered/Not Resolved]
  - Condition aggravated [Unknown]
  - Hypoalbuminaemia [Unknown]
  - Abdominal lymphadenopathy [Unknown]
  - Functional gastrointestinal disorder [Unknown]

NARRATIVE: CASE EVENT DATE: 20200201
